FAERS Safety Report 9205436 (Version 6)
Quarter: 2013Q3

REPORT INFORMATION
  Report Type: Spontaneous
  Country: HU (occurrence: HU)
  Receive Date: 20130403
  Receipt Date: 20130819
  Transmission Date: 20140515
  Serious: Yes (Hospitalization, Other)
  Sender: FDA-Public Use
  Company Number: HU-ABBOTT-13X-076-1071456-00

PATIENT
  Sex: 0

DRUGS (1)
  1. CLARITHROMYCIN [Suspect]
     Indication: PRODUCT USED FOR UNKNOWN INDICATION

REACTIONS (2)
  - Erythema multiforme [Unknown]
  - Stevens-Johnson syndrome [Unknown]
